FAERS Safety Report 9577192 (Version 2)
Quarter: 2013Q4

REPORT INFORMATION
  Report Type: Spontaneous
  Country: US (occurrence: US)
  Receive Date: 20131001
  Receipt Date: 20131001
  Transmission Date: 20140711
  Serious: No
  Sender: FDA-Public Use
  Company Number: US-AMGEN-USASP2013000479

PATIENT
  Age: 53 Year
  Sex: Female

DRUGS (4)
  1. ENBREL [Suspect]
     Indication: RHEUMATOID ARTHRITIS
     Dosage: 50 MG, QWK
     Route: 058
     Dates: start: 20120628
  2. METHOTREXATE [Concomitant]
     Dosage: 2.5 MG, 9 TABLETS PO WEEK
     Route: 048
  3. PLAQUENIL                          /00072602/ [Concomitant]
     Dosage: 200 MG, BID
     Route: 048
  4. FOLIC ACID [Concomitant]
     Dosage: 1 MG, QD
     Route: 048

REACTIONS (20)
  - Osteoarthritis [Unknown]
  - Fibromyalgia [Unknown]
  - Seronegative arthritis [Unknown]
  - Intervertebral disc degeneration [Unknown]
  - Insomnia [Unknown]
  - Fatigue [Unknown]
  - Headache [Unknown]
  - Hepatic enzyme increased [Unknown]
  - Arthralgia [Unknown]
  - Neck pain [Unknown]
  - Musculoskeletal pain [Unknown]
  - Back pain [Unknown]
  - Pain in extremity [Unknown]
  - Diarrhoea [Unknown]
  - Constipation [Unknown]
  - Weight increased [Unknown]
  - Hypocalcaemia [Unknown]
  - Condition aggravated [Unknown]
  - Swelling [Unknown]
  - Cellulitis [Not Recovered/Not Resolved]
